FAERS Safety Report 5150275-9 (Version None)
Quarter: 2006Q4

REPORT INFORMATION
  Report Type: 
  Country: None (occurrence: None)
  Receive Date: 20061109
  Receipt Date: 20061109
  Transmission Date: 20070319
  Serious: Yes (Other)
  Sender: FDA-Public Use
  Company Number: None

PATIENT
  Age: 78 Year
  Sex: Female
  Weight: 63.5036 kg

DRUGS (2)
  1. ALDARA [Suspect]
     Indication: SKIN DISORDER
     Dosage: APPLY SMALL AMOUNT ONCE DAILY TOPICAL
     Route: 061
     Dates: start: 20061003, end: 20061010
  2. ALDARA [Suspect]
     Indication: SKIN DISORDER
     Dosage: APPLY SMALL AMOUNT ONCE DAILY TOPICAL
     Route: 061
     Dates: start: 20061017, end: 20061020

REACTIONS (16)
  - ANOREXIA [None]
  - ASTHENIA [None]
  - BLISTER [None]
  - CYSTITIS [None]
  - ERYTHEMA [None]
  - EYE INFECTION [None]
  - FATIGUE [None]
  - HEADACHE [None]
  - HEART RATE INCREASED [None]
  - NAUSEA [None]
  - PRURITUS [None]
  - SKIN EXFOLIATION [None]
  - SKIN LESION [None]
  - SWELLING [None]
  - VOMITING [None]
  - WEIGHT DECREASED [None]
